FAERS Safety Report 5532267-0 (Version None)
Quarter: 2007Q4

REPORT INFORMATION
  Report Type: 
  Country: None (occurrence: None)
  Receive Date: 20071203
  Receipt Date: 20071122
  Transmission Date: 20080405
  Serious: Yes (Other)
  Sender: FDA-Public Use
  Company Number: GB-JNJFOC-20071109400

PATIENT
  Sex: Male
  Weight: 75 kg

DRUGS (10)
  1. REMICADE [Suspect]
     Indication: RHEUMATOID ARTHRITIS
     Route: 042
  2. METHOTREXATE [Concomitant]
  3. PREDNISOLONE [Concomitant]
  4. ASPIRIN [Concomitant]
  5. DOXAZOSIN MESYLATE [Concomitant]
  6. GASTROCOTE [Concomitant]
  7. LANSOPRAZOLE [Concomitant]
  8. NITROLINGUAL [Concomitant]
  9. SODIUM BICARBONATE [Concomitant]
  10. SOLPADOL [Concomitant]

REACTIONS (2)
  - BASAL CELL CARCINOMA [None]
  - MALIGNANT MELANOMA [None]
